FAERS Safety Report 26186847 (Version 2)
Quarter: 2025Q4

REPORT INFORMATION
  Report Type: Report from Study
  Country: GB (occurrence: GB)
  Receive Date: 20251222
  Receipt Date: 20251229
  Transmission Date: 20260118
  Serious: Yes (Other)
  Sender: ABBVIE
  Company Number: GB-ABBVIE-6600662

PATIENT
  Age: 42 Year
  Sex: Male

DRUGS (1)
  1. SKYRIZI [Suspect]
     Active Substance: RISANKIZUMAB-RZAA
     Indication: Psoriasis
     Dosage: 150MG/1ML, SOLUTION FOR INJECTION IN PRE-FILLED PEN, 1 PRE-FILLED DISPOSABLE INJECTION
     Route: 058
     Dates: start: 20250902, end: 2025

REACTIONS (3)
  - Anorectal operation [Unknown]
  - Product storage error [Unknown]
  - Colostomy [Unknown]

NARRATIVE: CASE EVENT DATE: 20250101
